FAERS Safety Report 15588807 (Version 1)
Quarter: 2018Q4

REPORT INFORMATION
  Report Type: Spontaneous
  Country: FR (occurrence: FR)
  Receive Date: 20181106
  Receipt Date: 20181106
  Transmission Date: 20190205
  Serious: Yes (Hospitalization)
  Sender: FDA-Public Use
  Company Number: FR-SUN PHARMACEUTICAL INDUSTRIES LTD-2018RR-190362

PATIENT
  Age: 69 Year
  Sex: Female
  Weight: 60 kg

DRUGS (3)
  1. PARACETAMOL [Suspect]
     Active Substance: ACETAMINOPHEN
     Indication: RHINORRHOEA
     Dosage: 1 G
     Route: 048
     Dates: start: 20181002, end: 20181002
  2. STREPSILS (AMYLMETACRESOL\DICHLOROBENZYL ALCOHOL) [Suspect]
     Active Substance: AMYLMETACRESOL\DICHLOROBENZYL ALCOHOL
     Indication: RHINORRHOEA
     Dosage: 1 DF
     Route: 048
     Dates: start: 20181002, end: 20181002
  3. CORYZALIA [Suspect]
     Active Substance: HOMEOPATHICS
     Indication: RHINORRHOEA
     Dosage: 1 DF
     Route: 048
     Dates: start: 20181002, end: 20181002

REACTIONS (1)
  - Anaphylactic shock [Not Recovered/Not Resolved]

NARRATIVE: CASE EVENT DATE: 20181002
